FAERS Safety Report 21952287 (Version 1)
Quarter: 2023Q1

REPORT INFORMATION
  Report Type: Report from Study
  Country: US (occurrence: US)
  Receive Date: 20230203
  Receipt Date: 20230203
  Transmission Date: 20230417
  Serious: No
  Sender: FDA-Public Use
  Company Number: US-EXELIXIS-CABO-22050592

PATIENT
  Sex: Male

DRUGS (1)
  1. CABOMETYX [Suspect]
     Active Substance: CABOZANTINIB S-MALATE
     Indication: Lung neoplasm malignant
     Dosage: 40 MG, QD
     Route: 048
     Dates: start: 20220211

REACTIONS (4)
  - Adverse drug reaction [Unknown]
  - Diarrhoea [Unknown]
  - Fatigue [Unknown]
  - Off label use [Unknown]
